FAERS Safety Report 11393130 (Version 2)
Quarter: 2015Q3

REPORT INFORMATION
  Report Type: Spontaneous
  Country: PL (occurrence: PL)
  Receive Date: 20150818
  Receipt Date: 20150904
  Transmission Date: 20151125
  Serious: Yes (Other)
  Sender: FDA-Public Use
  Company Number: PL-REGENERON PHARMACEUTICALS, INC.-2015-11962

PATIENT

DRUGS (3)
  1. EYLEA [Suspect]
     Active Substance: AFLIBERCEPT
     Indication: MACULAR OEDEMA
     Dosage: 2 MG, LEFT EYE
     Route: 031
     Dates: start: 2014, end: 2014
  2. EYLEA [Suspect]
     Active Substance: AFLIBERCEPT
     Indication: RETINAL VEIN OCCLUSION
     Dosage: TEN DAYS AFTER THE FOLLOW-UP EVALUATION THE SECOND DOSE OF AFLIBERCEPT
     Route: 031
     Dates: start: 2014, end: 2014
  3. EYLEA [Suspect]
     Active Substance: AFLIBERCEPT
     Dosage: THIRD DOSE INTO HIS LEFT EYE
     Route: 031
     Dates: start: 2014, end: 2014

REACTIONS (3)
  - Retinal ischaemia [Unknown]
  - Drug ineffective [Unknown]
  - Macular oedema [Unknown]
